FAERS Safety Report 20815767 (Version 2)
Quarter: 2022Q2

REPORT INFORMATION
  Report Type: Spontaneous
  Country: HU (occurrence: HU)
  Receive Date: 20220511
  Receipt Date: 20220622
  Transmission Date: 20220721
  Serious: Yes (Death, Hospitalization, Other)
  Sender: FDA-Public Use
  Company Number: HU-BoehringerIngelheim-2022-BI-169734

PATIENT
  Age: 74 Year
  Sex: Female

DRUGS (2)
  1. NINTEDANIB [Suspect]
     Active Substance: NINTEDANIB
     Indication: Interstitial lung disease
     Dates: start: 201808
  2. NINTEDANIB [Suspect]
     Active Substance: NINTEDANIB
     Dosage: REDUCED DOSE

REACTIONS (5)
  - Cardiac failure [Fatal]
  - Disease progression [Not Recovered/Not Resolved]
  - Nausea [Unknown]
  - Vomiting [Unknown]
  - Infection [Unknown]

NARRATIVE: CASE EVENT DATE: 20220401
